FAERS Safety Report 17261525 (Version 1)
Quarter: 2020Q1

REPORT INFORMATION
  Report Type: Spontaneous
  Country: US (occurrence: US)
  Receive Date: 20200113
  Receipt Date: 20200113
  Transmission Date: 20200409
  Serious: Yes (Other)
  Sender: FDA-Public Use
  Company Number: US-SA-2020SA004642

PATIENT
  Sex: Male

DRUGS (1)
  1. LANTUS SOLOSTAR [Suspect]
     Active Substance: INSULIN GLARGINE
     Dosage: 18 IU
     Route: 065

REACTIONS (3)
  - Aphasia [Unknown]
  - Tongue neoplasm malignant stage unspecified [Unknown]
  - Head and neck cancer [Unknown]

NARRATIVE: CASE EVENT DATE: 201912
